FAERS Safety Report 17064401 (Version 1)
Quarter: 2019Q4

REPORT INFORMATION
  Report Type: Spontaneous
  Country: JP (occurrence: JP)
  Receive Date: 20191122
  Receipt Date: 20191122
  Transmission Date: 20200122
  Serious: Yes (Life-Threatening)
  Sender: FDA-Public Use
  Company Number: JP-PFIZER INC-2019499764

PATIENT
  Age: 93 Year
  Sex: Male
  Weight: 61 kg

DRUGS (8)
  1. FEBURIC [Concomitant]
     Active Substance: FEBUXOSTAT
     Dosage: UNK
  2. DIASTASE [Concomitant]
     Active Substance: DIASTASE
     Dosage: UNK
  3. TAKECAB [Concomitant]
     Active Substance: VONOPRAZAN FUMURATE
     Dosage: UNK
  4. SAMSCA [Concomitant]
     Active Substance: TOLVAPTAN
     Dosage: UNK
  5. CYMBALTA [Concomitant]
     Active Substance: DULOXETINE HYDROCHLORIDE
     Dosage: UNK
  6. RHEUMATREX [Suspect]
     Active Substance: METHOTREXATE SODIUM
     Indication: RHEUMATOID ARTHRITIS
     Dosage: 6 MG, WEEKLY
     Route: 048
     Dates: start: 20190914, end: 20190922
  7. AZOSEMIDE [Concomitant]
     Active Substance: AZOSEMIDE
     Dosage: UNK
  8. MOSAPRIDE [Concomitant]
     Active Substance: MOSAPRIDE
     Dosage: UNK

REACTIONS (2)
  - Contraindicated product administered [Unknown]
  - Pancytopenia [Recovered/Resolved]

NARRATIVE: CASE EVENT DATE: 20190914
